FAERS Safety Report 7024029-2 (Version None)
Quarter: 2010Q4

REPORT INFORMATION
  Report Type: 
  Country: None (occurrence: None)
  Receive Date: 20101001
  Receipt Date: 20100922
  Transmission Date: 20110411
  Serious: Yes (Other)
  Sender: FDA-Public Use
  Company Number: US-JNJFOC-20100108347

PATIENT
  Sex: Female
  Weight: 48.08 kg

DRUGS (4)
  1. EXTRA STRENGTH TYLENOL [Suspect]
     Route: 048
  2. EXTRA STRENGTH TYLENOL [Suspect]
     Indication: HEADACHE
     Dosage: 1000 MG EVERY 6 HOURS AS NEEDED
     Route: 048
  3. MOTRIN [Suspect]
     Indication: PYREXIA
  4. PREDNISONE [Concomitant]
     Indication: UVEITIS
     Route: 047

REACTIONS (15)
  - ABDOMINAL PAIN UPPER [None]
  - DEHYDRATION [None]
  - DIARRHOEA [None]
  - DIZZINESS [None]
  - DRUG INEFFECTIVE [None]
  - EYE SWELLING [None]
  - GASTROENTERITIS VIRAL [None]
  - HEADACHE [None]
  - NAUSEA [None]
  - OROPHARYNGEAL PAIN [None]
  - PAIN [None]
  - PRODUCT QUALITY ISSUE [None]
  - RASH [None]
  - VOMITING [None]
  - WEIGHT DECREASED [None]
